FAERS Safety Report 6239675-3 (Version None)
Quarter: 2009Q2

REPORT INFORMATION
  Report Type: 
  Country: None (occurrence: None)
  Receive Date: 20090619
  Receipt Date: 20090610
  Transmission Date: 20091009
  Serious: Yes (Life-Threatening, Hospitalization)
  Sender: FDA-Public Use
  Company Number: ADE2009-0663

PATIENT
  Age: 72 Year
  Sex: Male

DRUGS (12)
  1. AMOXICILLIN [Suspect]
     Dosage: 500MG - TID - ORAL
     Route: 048
  2. SIMVASTATIN [Suspect]
     Indication: BLOOD CHOLESTEROL INCREASED
     Dosage: 80MG - DAILY - ORAL
     Route: 048
  3. CARBOPLATIN [Suspect]
     Dates: start: 20060201
  4. GEMCITABINE [Suspect]
     Dates: start: 20060201
  5. OMEPRAZOLE [Suspect]
     Dosage: 20MG - ORAL
     Route: 048
     Dates: start: 20060601
  6. ASPIRIN [Concomitant]
  7. ATENOLOL [Concomitant]
  8. CHLORDIAZEPOXIDE [Concomitant]
  9. CIPROFLOXACIN [Concomitant]
  10. CLARITHROMYCIN [Concomitant]
  11. CORACTEN XL [Concomitant]
  12. GRANISETRON HCL [Concomitant]

REACTIONS (2)
  - RENAL FAILURE ACUTE [None]
  - RHABDOMYOLYSIS [None]
